FAERS Safety Report 13092348 (Version 1)
Quarter: 2017Q1

REPORT INFORMATION
  Report Type: Spontaneous
  Country: US (occurrence: US)
  Receive Date: 20170106
  Receipt Date: 20170106
  Transmission Date: 20170428
  Serious: No
  Sender: FDA-Public Use
  Company Number: US-JNJFOC-20161106391

PATIENT
  Age: 6 Month
  Sex: Female
  Weight: 7.71 kg

DRUGS (3)
  1. INFANTS TYLENOL [Suspect]
     Active Substance: ACETAMINOPHEN
     Indication: COUGH
     Dosage: ONCE
     Route: 048
     Dates: start: 20161104
  2. INFANTS TYLENOL [Suspect]
     Active Substance: ACETAMINOPHEN
     Indication: NASOPHARYNGITIS
     Dosage: ONCE
     Route: 048
     Dates: start: 20161104
  3. INFANTS TYLENOL [Suspect]
     Active Substance: ACETAMINOPHEN
     Indication: NASAL CONGESTION
     Dosage: ONCE
     Route: 048
     Dates: start: 20161104

REACTIONS (1)
  - Product use issue [Unknown]
